FAERS Safety Report 7860887-7 (Version None)
Quarter: 2011Q4

REPORT INFORMATION
  Report Type: 
  Country: None (occurrence: None)
  Receive Date: 20111027
  Receipt Date: 20111014
  Transmission Date: 20120403
  Serious: Yes (Other)
  Sender: FDA-Public Use
  Company Number: JP-EISAI INC-E7389-01675-SPO-JP

PATIENT
  Sex: Female

DRUGS (2)
  1. HALAVEN [Suspect]
     Indication: BREAST CANCER RECURRENT
     Route: 041
     Dates: start: 20110927
  2. NAVOBAN [Concomitant]
     Indication: NAUSEA
     Route: 048

REACTIONS (3)
  - NEUTROPENIA [None]
  - RENAL IMPAIRMENT [None]
  - STOMATITIS [None]
